FAERS Safety Report 13163553 (Version 3)
Quarter: 2017Q3

REPORT INFORMATION
  Report Type: Spontaneous
  Country: US (occurrence: US)
  Receive Date: 20170130
  Receipt Date: 20170908
  Transmission Date: 20171127
  Serious: No
  Sender: FDA-Public Use
  Company Number: US-TEVA-729221ACC

PATIENT
  Age: 60 Year
  Sex: Female

DRUGS (22)
  1. CALCIUM [Concomitant]
     Active Substance: CALCIUM
  2. EPITOL [Concomitant]
     Active Substance: CARBAMAZEPINE
  3. METOPROLOL. [Concomitant]
     Active Substance: METOPROLOL
  4. OMEGA 3 [Concomitant]
     Active Substance: OMEGA-3 FATTY ACIDS
  5. DRONABINOL. [Concomitant]
     Active Substance: DRONABINOL
  6. COPAXONE [Suspect]
     Active Substance: GLATIRAMER ACETATE
     Indication: MULTIPLE SCLEROSIS
     Dosage: PREFILLED SYRINGE
     Route: 058
     Dates: start: 20101215
  7. LEVOTHYROXINE. [Concomitant]
     Active Substance: LEVOTHYROXINE
  8. TIZANIDINE. [Concomitant]
     Active Substance: TIZANIDINE
  9. MODAFINIL. [Concomitant]
     Active Substance: MODAFINIL
  10. LISINOPRIL. [Concomitant]
     Active Substance: LISINOPRIL
  11. GABAPENTIN. [Concomitant]
     Active Substance: GABAPENTIN
  12. PROCARDIA [Concomitant]
     Active Substance: NIFEDIPINE
  13. PROVIGIL [Concomitant]
     Active Substance: MODAFINIL
  14. ECOTRIN [Concomitant]
     Active Substance: ASPIRIN
  15. MUCINEX [Concomitant]
     Active Substance: GUAIFENESIN
  16. BACLOFEN. [Concomitant]
     Active Substance: BACLOFEN
  17. FOSAMAX [Concomitant]
     Active Substance: ALENDRONATE SODIUM
  18. DOCUSATE [Concomitant]
     Active Substance: DOCUSATE
  19. OMEPRAZOLE. [Concomitant]
     Active Substance: OMEPRAZOLE
  20. OXYCODONE [Concomitant]
     Active Substance: OXYCODONE
  21. GEMFIBROZIL. [Concomitant]
     Active Substance: GEMFIBROZIL
  22. AMITRIPTYLINE [Concomitant]
     Active Substance: AMITRIPTYLINE

REACTIONS (3)
  - Motor dysfunction [Not Recovered/Not Resolved]
  - Fall [Not Recovered/Not Resolved]
  - Injection site pain [Not Recovered/Not Resolved]

NARRATIVE: CASE EVENT DATE: 20161201
